FAERS Safety Report 4900249-5 (Version None)
Quarter: 2006Q1

REPORT INFORMATION
  Report Type: 
  Country: None (occurrence: None)
  Receive Date: 20060202
  Receipt Date: 20060116
  Transmission Date: 20060701
  Serious: Yes (Other)
  Sender: FDA-Public Use
  Company Number: US200601002660

PATIENT
  Age: 71 Year
  Sex: Female

DRUGS (2)
  1. FORTEO [Suspect]
     Dates: start: 20040601
  2. FORTEO PEN (FORTEO PEN) [Concomitant]

REACTIONS (5)
  - METASTASES TO LIVER [None]
  - METASTASES TO LYMPH NODES [None]
  - NEUROPATHY PERIPHERAL [None]
  - PHARMACEUTICAL PRODUCT COMPLAINT [None]
  - RECTAL CANCER METASTATIC [None]
